FAERS Safety Report 9340910 (Version 2)
Quarter: 2013Q2

REPORT INFORMATION
  Report Type: Spontaneous
  Country: JP (occurrence: None)
  Receive Date: 20130605
  Receipt Date: 20130610
  Transmission Date: 20140414
  Serious: Yes (Death)
  Sender: FDA-Public Use
  Company Number: TCI2013A03080

PATIENT
  Age: 81 Year
  Sex: Male

DRUGS (10)
  1. NESINA [Suspect]
     Indication: TYPE 2 DIABETES MELLITUS
     Route: 048
     Dates: start: 20130124, end: 20130329
  2. BLOPRESS TABLETS 4 (CANDESARTAN CILEXETIL0 [Concomitant]
  3. BAYASPRIN (ACETYLSALICYLIC ACID) [Concomitant]
  4. FLUITRAN (TRICHLORMETHIAZIDE) [Concomitant]
  5. MEVALOTIN (PRAVASTATIN SODIUM) [Concomitant]
  6. GASTER D (FAMOTIDINE) [Concomitant]
  7. NORVASC OD (AMLODIPINE BESILATE) [Concomitant]
  8. EPADEL-S (EICOSAPENTAENOIC ACID ETHYL ESTER) [Concomitant]
  9. LENDORMIN (BROTIZOLAM) [Concomitant]
  10. SALOBEL (ALLOPURINOL) [Concomitant]

REACTIONS (1)
  - Sudden death [None]
